FAERS Safety Report 14604830 (Version 1)
Quarter: 2018Q1

REPORT INFORMATION
  Report Type: Report from Study
  Country: AT (occurrence: AT)
  Receive Date: 20180306
  Receipt Date: 20180306
  Transmission Date: 20180509
  Serious: Yes (Death, Other)
  Sender: FDA-Public Use
  Company Number: AT-JNJFOC-20171013112

PATIENT

DRUGS (4)
  1. PARACETAMOL [Concomitant]
     Active Substance: ACETAMINOPHEN
     Indication: PREMEDICATION
     Route: 065
  2. REMICADE [Suspect]
     Active Substance: INFLIXIMAB
     Indication: RHEUMATOID ARTHRITIS
     Route: 042
  3. REMICADE [Suspect]
     Active Substance: INFLIXIMAB
     Indication: RHEUMATOID ARTHRITIS
     Route: 042
  4. INFLIXIMAB [Suspect]
     Active Substance: INFLIXIMAB
     Indication: RHEUMATOID ARTHRITIS
     Route: 042

REACTIONS (37)
  - Papillary thyroid cancer [Unknown]
  - Drug hypersensitivity [Unknown]
  - Diabetic foot infection [Unknown]
  - Urticaria [Unknown]
  - Upper respiratory tract infection [Unknown]
  - Latent tuberculosis [Unknown]
  - Drug specific antibody present [Unknown]
  - Aspartate aminotransferase increased [Unknown]
  - Tonsillitis [Unknown]
  - Anaphylactic shock [Unknown]
  - Arthritis bacterial [Unknown]
  - Headache [Unknown]
  - Basal cell carcinoma [Unknown]
  - Back pain [Unknown]
  - Rash [Unknown]
  - Abdominal pain upper [Unknown]
  - Lip and/or oral cavity cancer [Unknown]
  - Haematoma infection [Unknown]
  - Rheumatoid arthritis [Unknown]
  - Alanine aminotransferase increased [Unknown]
  - Antinuclear antibody positive [Unknown]
  - Bronchitis [Unknown]
  - Urinary tract infection [Unknown]
  - Pneumonia [Unknown]
  - Hypertension [Unknown]
  - Cough [Unknown]
  - Pharyngitis [Unknown]
  - Pyrexia [Unknown]
  - Dyspepsia [Unknown]
  - Cardiac failure congestive [Fatal]
  - Adverse event [Unknown]
  - Dizziness [Unknown]
  - Drug ineffective [Unknown]
  - Infusion related reaction [Unknown]
  - Respiratory tract infection [Unknown]
  - Nasopharyngitis [Unknown]
  - Arthralgia [Unknown]
